FAERS Safety Report 5509228-0 (Version None)
Quarter: 2007Q4

REPORT INFORMATION
  Report Type: 
  Country: None (occurrence: None)
  Receive Date: 20071107
  Receipt Date: 20071105
  Transmission Date: 20080405
  Serious: Yes (Death)
  Sender: FDA-Public Use
  Company Number: UG-BOEHRINGER INGELHEIM PHARMACEUTICALS, INC.-2007-BP-23964BP

PATIENT
  Age: 2 Month
  Sex: Male

DRUGS (2)
  1. VIRAMUNE [Suspect]
     Indication: PROPHYLAXIS AGAINST HIV INFECTION
     Dosage: 1.8ML ORAL ONCE DAILY
     Route: 048
     Dates: start: 20070809, end: 20070910
  2. PLACEBO (BLIND) [Suspect]
     Indication: PROPHYLAXIS AGAINST HIV INFECTION
     Route: 048
     Dates: start: 20070809, end: 20070910

REACTIONS (1)
  - DEATH [None]
